FAERS Safety Report 18891008 (Version 1)
Quarter: 2021Q1

REPORT INFORMATION
  Report Type: Other
  Country: RU (occurrence: RU)
  Receive Date: 20210215
  Receipt Date: 20210215
  Transmission Date: 20210420
  Serious: Yes (Life-Threatening, Hospitalization)
  Sender: FDA-Public Use
  Company Number: RU-ROCHE-2765670

PATIENT

DRUGS (1)
  1. TOCILIZUMAB. [Suspect]
     Active Substance: TOCILIZUMAB
     Indication: STILL^S DISEASE
     Route: 065

REACTIONS (3)
  - Sinusitis [Recovered/Resolved]
  - Still^s disease [Unknown]
  - Haemophagocytic lymphohistiocytosis [Recovered/Resolved]
